FAERS Safety Report 18251442 (Version 2)
Quarter: 2020Q4

REPORT INFORMATION
  Report Type: Report from Study
  Country: None (occurrence: NL)
  Receive Date: 20200910
  Receipt Date: 20201005
  Transmission Date: 20210113
  Serious: Yes (Death)
  Sender: FDA-Public Use
  Company Number: NL-ABBVIE-20K-114-3558787-00

PATIENT
  Sex: Female

DRUGS (3)
  1. ROTIGOTINE [Concomitant]
     Active Substance: ROTIGOTINE
     Indication: PARKINSON^S DISEASE
  2. DUODOPA [Suspect]
     Active Substance: CARBIDOPA\LEVODOPA
     Route: 050
  3. DUODOPA [Suspect]
     Active Substance: CARBIDOPA\LEVODOPA
     Indication: PARKINSON^S DISEASE
     Dosage: MD: 4.0, CD: 1.9, ED: 1.5, 20 MG/ML 5 MG/ML
     Route: 050
     Dates: start: 20060529

REACTIONS (1)
  - Parkinson^s disease [Fatal]
